FAERS Safety Report 11655980 (Version 1)
Quarter: 2015Q4

REPORT INFORMATION
  Report Type: Spontaneous
  Country: IL (occurrence: IL)
  Receive Date: 20151023
  Receipt Date: 20151023
  Transmission Date: 20160304
  Serious: Yes (Other)
  Sender: FDA-Public Use
  Company Number: IL-PFIZER INC-2015354423

PATIENT
  Age: 32 Year
  Sex: Female
  Weight: 75 kg

DRUGS (7)
  1. MORPHINE SULFATE. [Suspect]
     Active Substance: MORPHINE SULFATE
     Indication: SPINAL ANAESTHESIA
     Dosage: 150 ?G MORPHINE PRESERVATIVE FREE
     Route: 037
  2. RINGER-LACTATE [Concomitant]
     Dosage: 700 UNK, UNK
     Route: 042
  3. HEPARIN-FRACTION [Concomitant]
     Active Substance: HEPARIN SODIUM
     Dosage: 40 MG, DAILY
  4. BUPIVACAINE [Concomitant]
     Active Substance: BUPIVACAINE
     Indication: SPINAL ANAESTHESIA
     Dosage: 10 MG HYPERBARIC BUPIVACAINE (0.5%)
     Route: 037
  5. RINGER-LACTATE [Concomitant]
     Dosage: PARENTERAL FLUIDS (1000 ML OF RINGER LACTATE SOLUTION)
     Route: 051
  6. CEFTRIAXONE. [Concomitant]
     Active Substance: CEFTRIAXONE
     Indication: PROPHYLAXIS
     Dosage: 1 G, UNK
     Route: 042
  7. MORPHINE SULFATE. [Suspect]
     Active Substance: MORPHINE SULFATE
     Indication: SPINAL ANAESTHESIA

REACTIONS (1)
  - Hypothermia [Recovered/Resolved]
